FAERS Safety Report 25015306 (Version 1)
Quarter: 2025Q1

REPORT INFORMATION
  Report Type: Spontaneous
  Country: US (occurrence: US)
  Receive Date: 20250226
  Receipt Date: 20250226
  Transmission Date: 20250409
  Serious: Yes (Other)
  Sender: ORGANON
  Company Number: US-MLMSERVICE-20250213-PI403388-00226-1

PATIENT
  Age: 39 Year
  Sex: Female

DRUGS (5)
  1. REMERON [Suspect]
     Active Substance: MIRTAZAPINE
  2. TACROLIMUS [Suspect]
     Active Substance: TACROLIMUS
  3. LANSOPRAZOLE [Suspect]
     Active Substance: LANSOPRAZOLE
  4. MARIBAVIR [Suspect]
     Active Substance: MARIBAVIR
  5. ZOSYN [Concomitant]
     Active Substance: PIPERACILLIN SODIUM\TAZOBACTAM SODIUM

REACTIONS (1)
  - Pancytopenia [Unknown]

NARRATIVE: CASE EVENT DATE: 20230901
